FAERS Safety Report 4884247-6 (Version None)
Quarter: 2005Q4

REPORT INFORMATION
  Report Type: 
  Country: None (occurrence: None)
  Receive Date: 20051201
  Receipt Date: 20050826
  Transmission Date: 20060501
  Serious: No
  Sender: FDA-Public Use
  Company Number: 2005PV001598

PATIENT
  Age: 66 Year
  Sex: Male
  Weight: 100.6985 kg

DRUGS (4)
  1. BYETTA [Suspect]
     Indication: DIABETES MELLITUS NON-INSULIN-DEPENDENT
     Dosage: 5MCG;BID;SC
     Route: 058
     Dates: start: 20050726
  2. AMARYL [Concomitant]
  3. AVANDIA [Concomitant]
  4. PLAVIX [Concomitant]

REACTIONS (4)
  - BLOOD GLUCOSE DECREASED [None]
  - NAUSEA [None]
  - THIRST DECREASED [None]
  - WEIGHT DECREASED [None]
